FAERS Safety Report 15859535 (Version 2)
Quarter: 2019Q2

REPORT INFORMATION
  Report Type: Report from Study
  Country: BR (occurrence: BR)
  Receive Date: 20190123
  Receipt Date: 20190423
  Transmission Date: 20190711
  Serious: Yes (Hospitalization, Other)
  Sender: FDA-Public Use
  Company Number: PHHY2019BR012577

PATIENT
  Sex: Female
  Weight: 76 kg

DRUGS (3)
  1. EXELON PATCH [Suspect]
     Active Substance: RIVASTIGMINE
     Indication: MEMORY IMPAIRMENT
  2. EXELON PATCH [Suspect]
     Active Substance: RIVASTIGMINE
     Indication: DEMENTIA
     Dosage: 9.5 MG, QD PATCH 10 (CM2)
     Route: 062
     Dates: start: 201808
  3. EXELON PATCH [Suspect]
     Active Substance: RIVASTIGMINE
     Indication: COGNITIVE DISORDER

REACTIONS (7)
  - Nausea [Recovering/Resolving]
  - Cardiac failure [Not Recovered/Not Resolved]
  - Left ventricular failure [Not Recovered/Not Resolved]
  - Erythema [Unknown]
  - Application site erythema [Not Recovered/Not Resolved]
  - Application site hypersensitivity [Not Recovered/Not Resolved]
  - Application site pruritus [Not Recovered/Not Resolved]
